FAERS Safety Report 5740507-8 (Version None)
Quarter: 2008Q2

REPORT INFORMATION
  Report Type: 
  Country: None (occurrence: None)
  Receive Date: 20080513
  Receipt Date: 20080507
  Transmission Date: 20081010
  Serious: Yes (Death, Hospitalization)
  Sender: FDA-Public Use
  Company Number: APP200800355

PATIENT
  Sex: Female

DRUGS (3)
  1. HEPARIN SODIUM INJECTION [Suspect]
     Indication: HAEMODIALYSIS
     Dosage: INJECTION
     Dates: start: 20080425, end: 20080425
  2. GAMBRO PHOENIX DIALYSIS MACHINE [Suspect]
     Indication: HAEMODIALYSIS
  3. BAXTER EXELTRA DIALYZER [Suspect]
     Indication: HAEMODIALYSIS

REACTIONS (3)
  - HAEMOLYSIS [None]
  - MUSCLE SPASMS [None]
  - PNEUMONIA [None]
